FAERS Safety Report 23289857 (Version 2)
Quarter: 2024Q2

REPORT INFORMATION
  Report Type: Spontaneous
  Country: US (occurrence: US)
  Receive Date: 20231212
  Receipt Date: 20240513
  Transmission Date: 20240716
  Serious: No
  Sender: FDA-Public Use
  Company Number: US-ELI_LILLY_AND_COMPANY-US202312006751

PATIENT
  Age: 28 Year
  Sex: Female

DRUGS (4)
  1. ADCIRCA [Suspect]
     Active Substance: TADALAFIL
     Indication: Pulmonary arterial hypertension
     Dosage: UNK, UNKNOWN
     Route: 065
  2. REMODULIN [Suspect]
     Active Substance: TREPROSTINIL
     Indication: Pulmonary arterial hypertension
     Dosage: 34NG/KG/MIN
     Route: 058
     Dates: start: 202311
  3. REMODULIN [Suspect]
     Active Substance: TREPROSTINIL
     Dosage: 101NG/KG/MIN, CONTINUOUS
     Route: 058
     Dates: start: 202311
  4. KYLEENA [Concomitant]
     Active Substance: LEVONORGESTREL
     Indication: Contraceptive implant
     Dosage: UNK, UNKNOWN
     Route: 065

REACTIONS (1)
  - Injection site pain [Unknown]
